FAERS Safety Report 4585116-1 (Version None)
Quarter: 2005Q1

REPORT INFORMATION
  Report Type: 
  Country: None (occurrence: None)
  Receive Date: 20050214
  Receipt Date: 20050131
  Transmission Date: 20050727
  Serious: Yes (Hospitalization)
  Sender: FDA-Public Use
  Company Number: 159479

PATIENT
  Age: 53 Year
  Sex: Female
  Weight: 77.1115 kg

DRUGS (2)
  1. AVONEX [Suspect]
     Indication: MULTIPLE SCLEROSIS
     Dosage: 30 UG; QW; IM
     Route: 030
     Dates: start: 19980101, end: 20000101
  2. AVONEX [Suspect]
     Indication: MULTIPLE SCLEROSIS
     Dosage: 30 UG; QW; IM
     Route: 030
     Dates: start: 20040928

REACTIONS (11)
  - ASTHMA [None]
  - BRAIN OEDEMA [None]
  - CEREBRAL ATROPHY [None]
  - CEREBRAL SARCOIDOSIS [None]
  - CEREBROVASCULAR ACCIDENT [None]
  - DYSGRAPHIA [None]
  - FALL [None]
  - INJECTION SITE REACTION [None]
  - RHEUMATOID ARTHRITIS [None]
  - SARCOIDOSIS [None]
  - SJOGREN'S SYNDROME [None]
